FAERS Safety Report 15147249 (Version 1)
Quarter: 2018Q3

REPORT INFORMATION
  Report Type: Spontaneous
  Country: GB (occurrence: GB)
  Receive Date: 20180716
  Receipt Date: 20180716
  Transmission Date: 20181010
  Serious: Yes (Other)
  Sender: FDA-Public Use
  Company Number: GB-TEVA-2018-GB-925811

PATIENT
  Age: 60 Year
  Sex: Female
  Weight: 75.29 kg

DRUGS (5)
  1. DIAMOX SEQUELS [Suspect]
     Active Substance: ACETAZOLAMIDE
     Indication: INTRAOCULAR PRESSURE INCREASED
     Dosage: 250 MILLIGRAM DAILY;
     Route: 048
     Dates: start: 20180606, end: 20180606
  2. ACICLOVIR [Concomitant]
     Active Substance: ACYCLOVIR
     Route: 065
  3. LATANOPROST. [Concomitant]
     Active Substance: LATANOPROST
     Route: 065
  4. COSOPT [Concomitant]
     Active Substance: DORZOLAMIDE HYDROCHLORIDE\TIMOLOL MALEATE
     Route: 065
  5. DEXAMETHASONE SODIUM PHOSPHATE. [Concomitant]
     Active Substance: DEXAMETHASONE SODIUM PHOSPHATE
     Route: 065

REACTIONS (3)
  - Chills [Unknown]
  - Paraesthesia [Recovered/Resolved]
  - Sensory disturbance [Unknown]

NARRATIVE: CASE EVENT DATE: 20180606
